FAERS Safety Report 4704550-X (Version None)
Quarter: 2005Q2

REPORT INFORMATION
  Report Type: 
  Country: None (occurrence: None)
  Receive Date: 20050629
  Receipt Date: 20050616
  Transmission Date: 20051028
  Serious: No
  Sender: FDA-Public Use
  Company Number: 05H-087-0299625-00

PATIENT
  Age: 68 Year
  Sex: Male

DRUGS (6)
  1. PRECEDEX [Suspect]
     Indication: SEDATION
     Dates: start: 20050525, end: 20050525
  2. MIDAZOLAM (MIDAZOLAM) [Suspect]
     Indication: ANAESTHESIA
     Dates: start: 20050525, end: 20050525
  3. VECURONIUM BROMIDE [Suspect]
     Indication: ANAESTHESIA
     Dates: start: 20050525, end: 20050525
  4. SEVOFLURANE [Suspect]
     Indication: ANAESTHESIA
     Dates: start: 20050525, end: 20050525
  5. PROPOFOL [Suspect]
     Indication: ANAESTHESIA
     Dates: start: 20050525, end: 20050525
  6. FENTANYL [Suspect]
     Indication: ANAESTHESIA
     Dates: start: 20050525, end: 20050525

REACTIONS (2)
  - GLOSSOPTOSIS [None]
  - OXYGEN SATURATION DECREASED [None]
